FAERS Safety Report 4338286-4 (Version None)
Quarter: 2004Q2

REPORT INFORMATION
  Report Type: 
  Country: None (occurrence: None)
  Receive Date: 20040414
  Receipt Date: 20040406
  Transmission Date: 20050107
  Serious: Yes (Hospitalization, Other)
  Sender: FDA-Public Use
  Company Number: US-BRISTOL-MYERS SQUIBB COMPANY-12555744

PATIENT
  Age: 36 Year
  Sex: Male

DRUGS (5)
  1. MITOMYCIN [Suspect]
     Indication: ILL-DEFINED DISORDER
  2. CISPLATIN [Suspect]
     Indication: ILL-DEFINED DISORDER
  3. IFOSFAMIDE [Suspect]
     Indication: ILL-DEFINED DISORDER
  4. ADRIAMYCIN PFS [Suspect]
     Indication: ILL-DEFINED DISORDER
  5. DILANTIN [Suspect]
     Indication: CONVULSION PROPHYLAXIS
     Route: 048

REACTIONS (2)
  - ERYTHEMA MULTIFORME [None]
  - FEBRILE NEUTROPENIA [None]
